FAERS Safety Report 15413339 (Version 1)
Quarter: 2018Q3

REPORT INFORMATION
  Report Type: Report from Study
  Country: US (occurrence: US)
  Receive Date: 20180921
  Receipt Date: 20180921
  Transmission Date: 20181010
  Serious: Yes (Other)
  Sender: FDA-Public Use
  Company Number: US-NOVOPROD-622202

PATIENT
  Age: 67 Year
  Sex: Female

DRUGS (3)
  1. SAXENDA [Suspect]
     Active Substance: LIRAGLUTIDE
     Indication: PRODUCT USED FOR UNKNOWN INDICATION
     Dosage: 1.8 MG, QD
     Route: 058
     Dates: start: 20180810, end: 2018
  2. SAXENDA [Suspect]
     Active Substance: LIRAGLUTIDE
     Dosage: 2.4 MG, QD
     Route: 058
     Dates: start: 2018, end: 2018
  3. SAXENDA [Suspect]
     Active Substance: LIRAGLUTIDE
     Dosage: DECREASED DOSE
     Route: 058
     Dates: start: 2018

REACTIONS (8)
  - Genital abscess [Not Recovered/Not Resolved]
  - Nausea [Not Recovered/Not Resolved]
  - Gastrooesophageal reflux disease [Not Recovered/Not Resolved]
  - Weight decreased [Unknown]
  - Dyspepsia [Unknown]
  - Ingrown hair [Unknown]
  - Vomiting [Recovered/Resolved]
  - Off label use [Unknown]

NARRATIVE: CASE EVENT DATE: 2018
